FAERS Safety Report 10272712 (Version 5)
Quarter: 2015Q2

REPORT INFORMATION
  Report Type: Spontaneous
  Country: US (occurrence: US)
  Receive Date: 20140702
  Receipt Date: 20150511
  Transmission Date: 20150821
  Serious: Yes (Death, Life-Threatening, Congenital Anomaly, Other)
  Sender: FDA-Public Use
  Company Number: US-ELI_LILLY_AND_COMPANY-US201406009642

PATIENT
  Weight: 3.49 kg

DRUGS (3)
  1. PRENAT                             /00023601/ [Concomitant]
     Route: 064
  2. PROZAC [Suspect]
     Active Substance: FLUOXETINE HYDROCHLORIDE
     Indication: DEPRESSION
     Dosage: 1 DF, UNKNOWN
     Route: 064
     Dates: start: 20010904
  3. PHENERGAN [Concomitant]
     Active Substance: PROMETHAZINE HYDROCHLORIDE
     Route: 064

REACTIONS (6)
  - Trisomy 22 [Not Recovered/Not Resolved]
  - Patent ductus arteriosus [Not Recovered/Not Resolved]
  - Neonatal respiratory distress syndrome [Unknown]
  - Chylothorax [Fatal]
  - Branchial cyst [Unknown]
  - Foetal exposure during pregnancy [Recovered/Resolved]
